FAERS Safety Report 9351674 (Version 5)
Quarter: 2014Q3

REPORT INFORMATION
  Report Type: Spontaneous
  Country: US (occurrence: US)
  Receive Date: 20130617
  Receipt Date: 20140714
  Transmission Date: 20150326
  Serious: Yes (Hospitalization, Other)
  Sender: FDA-Public Use
  Company Number: US-MERCK-1306USA006601

PATIENT
  Sex: Male
  Weight: 90.7 kg

DRUGS (3)
  1. FINASTERIDE. [Suspect]
     Active Substance: FINASTERIDE
     Indication: PROSTATOMEGALY
     Dosage: 5 MG, UNK
     Route: 048
     Dates: start: 20060112
  2. FLOMAX [Concomitant]
     Active Substance: TAMSULOSIN HYDROCHLORIDE
     Dosage: UNK
     Dates: start: 1995
  3. PROSCAR [Suspect]
     Active Substance: FINASTERIDE
     Indication: PROSTATOMEGALY
     Dosage: 5 MG, UNK
     Route: 048
     Dates: start: 20051004

REACTIONS (9)
  - Radical prostatectomy [Unknown]
  - Abdominal distension [Recovered/Resolved]
  - Stress urinary incontinence [Not Recovered/Not Resolved]
  - Libido decreased [Unknown]
  - Drug ineffective [Unknown]
  - Prostate cancer [Not Recovered/Not Resolved]
  - Erectile dysfunction [Unknown]
  - Lymphadenectomy [Unknown]
  - Drug ineffective [Unknown]

NARRATIVE: CASE EVENT DATE: 20051004
